FAERS Safety Report 8262652 (Version 3)
Quarter: 2013Q1

REPORT INFORMATION
  Report Type: Spontaneous
  Country: US (occurrence: US)
  Receive Date: 20111124
  Receipt Date: 20130307
  Transmission Date: 20140127
  Serious: No
  Sender: FDA-Public Use
  Company Number: US-PFIZER INC-2011285459

PATIENT
  Sex: Male

DRUGS (1)
  1. PROCARDIA XL [Suspect]
     Dosage: 30 MG, UNK

REACTIONS (2)
  - Local swelling [Not Recovered/Not Resolved]
  - Hypokinesia [Not Recovered/Not Resolved]
